FAERS Safety Report 7610078-X (Version None)
Quarter: 2011Q3

REPORT INFORMATION
  Report Type: 
  Country: None (occurrence: None)
  Receive Date: 20110715
  Receipt Date: 20110708
  Transmission Date: 20111222
  Serious: Yes (Hospitalization)
  Sender: FDA-Public Use
  Company Number: US-BIOGENIDEC-2011BI025051

PATIENT
  Age: 54 Year
  Sex: Female

DRUGS (1)
  1. TYSABRI [Suspect]
     Indication: MULTIPLE SCLEROSIS
     Route: 042
     Dates: start: 20071208, end: 20110401

REACTIONS (4)
  - CHEST PAIN [None]
  - INTERVERTEBRAL DISC INJURY [None]
  - STAPHYLOCOCCAL SKIN INFECTION [None]
  - CELLULITIS [None]
